FAERS Safety Report 19670901 (Version 4)
Quarter: 2021Q4

REPORT INFORMATION
  Report Type: Spontaneous
  Country: IT (occurrence: IT)
  Receive Date: 20210806
  Receipt Date: 20211118
  Transmission Date: 20220303
  Serious: Yes (Death, Other)
  Sender: FDA-Public Use
  Company Number: IT-GILEAD-2021-0543236

PATIENT
  Age: 35 Year
  Sex: Female

DRUGS (1)
  1. YESCARTA [Suspect]
     Active Substance: AXICABTAGENE CILOLEUCEL
     Indication: Primary mediastinal large B-cell lymphoma
     Dosage: UNK
     Route: 065
     Dates: start: 20210726, end: 20210726

REACTIONS (4)
  - Neurotoxicity [Fatal]
  - Cytokine release syndrome [Fatal]
  - Primary mediastinal large B-cell lymphoma [Not Recovered/Not Resolved]
  - Brain oedema [Unknown]

NARRATIVE: CASE EVENT DATE: 20210726
